FAERS Safety Report 8506720-1 (Version None)
Quarter: 2012Q3

REPORT INFORMATION
  Report Type: 
  Country: None (occurrence: None)
  Receive Date: 20120712
  Receipt Date: 20120712
  Transmission Date: 20120928
  Serious: Yes (Death, Other)
  Sender: FDA-Public Use
  Company Number: DE-B.I. PHARMACEUTICALS,INC./RIDGEFIELD-2010-DE-03888DE

PATIENT
  Sex: Male

DRUGS (1)
  1. MICARDIS [Suspect]

REACTIONS (2)
  - DEATH [None]
  - BRONCHIAL CARCINOMA [None]
